FAERS Safety Report 5393412-3 (Version None)
Quarter: 2007Q3

REPORT INFORMATION
  Report Type: 
  Country: None (occurrence: None)
  Receive Date: 20070723
  Receipt Date: 20070709
  Transmission Date: 20080115
  Serious: Yes (Other)
  Sender: FDA-Public Use
  Company Number: US-KINGPHARMUSA00001-K200700875

PATIENT

DRUGS (4)
  1. TAPAZOLE [Suspect]
     Indication: HYPERTHYROIDISM
     Dates: start: 20070501, end: 20070701
  2. DILANTIN [Concomitant]
     Indication: CONVULSION
  3. COMBIVENT /01033501/ [Concomitant]
  4. TACEPRA [Concomitant]

REACTIONS (3)
  - AREFLEXIA [None]
  - COORDINATION ABNORMAL [None]
  - NEUROPATHY [None]
